FAERS Safety Report 18462646 (Version 1)
Quarter: 2020Q4

REPORT INFORMATION
  Report Type: Spontaneous
  Country: GB (occurrence: GB)
  Receive Date: 20201104
  Receipt Date: 20201104
  Transmission Date: 20210114
  Serious: Yes (Other)
  Sender: FDA-Public Use
  Company Number: GB-PFIZER INC-2020422621

PATIENT
  Age: 31 Year
  Sex: Female
  Weight: 58.89 kg

DRUGS (2)
  1. CHAMPIX [Suspect]
     Active Substance: VARENICLINE TARTRATE
     Indication: SMOKING CESSATION THERAPY
     Dosage: 0.5 MG
     Route: 048
  2. CHAMPIX [Suspect]
     Active Substance: VARENICLINE TARTRATE
     Dosage: 1 MG
     Route: 048

REACTIONS (5)
  - Thirst [Unknown]
  - Abdominal pain upper [Unknown]
  - Nightmare [Unknown]
  - Sleep terror [Not Recovered/Not Resolved]
  - Abnormal dreams [Unknown]
